FAERS Safety Report 5049588-0 (Version None)
Quarter: 2006Q3

REPORT INFORMATION
  Report Type: 
  Country: None (occurrence: None)
  Receive Date: 20060712
  Receipt Date: 20060630
  Transmission Date: 20061208
  Serious: Yes (Hospitalization)
  Sender: FDA-Public Use
  Company Number: ES-BRISTOL-MYERS SQUIBB COMPANY-13430293

PATIENT
  Age: 59 Year
  Sex: Male

DRUGS (4)
  1. IRINOTECAN [Suspect]
     Route: 042
     Dates: start: 20060425, end: 20060425
  2. ERBITUX [Suspect]
     Dates: start: 20060607, end: 20060607
  3. TEGAFUR [Suspect]
     Dates: start: 20060607, end: 20060607
  4. CPT-11 [Suspect]
     Dates: start: 20060607, end: 20060607

REACTIONS (2)
  - DIARRHOEA [None]
  - FEBRILE NEUTROPENIA [None]
